FAERS Safety Report 17722977 (Version 2)
Quarter: 2020Q2

REPORT INFORMATION
  Report Type: Spontaneous
  Country: CA (occurrence: CA)
  Receive Date: 20200429
  Receipt Date: 20200529
  Transmission Date: 20200714
  Serious: Yes (Other)
  Sender: FDA-Public Use
  Company Number: CA-ROCHE-2589713

PATIENT
  Sex: Female

DRUGS (8)
  1. ACTEMRA [Suspect]
     Active Substance: TOCILIZUMAB
     Indication: RHEUMATOID ARTHRITIS
     Route: 042
  2. HYDROXYCHLOROQUINE SULFATE. [Suspect]
     Active Substance: HYDROXYCHLOROQUINE SULFATE
     Indication: PRODUCT USED FOR UNKNOWN INDICATION
     Route: 065
  3. METHOTREXATE. [Suspect]
     Active Substance: METHOTREXATE
     Indication: RHEUMATOID ARTHRITIS
     Route: 058
  4. ENBREL [Concomitant]
     Active Substance: ETANERCEPT
     Route: 058
  5. METHOTREXATE. [Suspect]
     Active Substance: METHOTREXATE
     Route: 058
  6. XELJANZ [Concomitant]
     Active Substance: TOFACITINIB CITRATE
     Indication: RHEUMATOID ARTHRITIS
     Route: 048
  7. HUMIRA [Concomitant]
     Active Substance: ADALIMUMAB
     Route: 058
  8. ORENCIA [Concomitant]
     Active Substance: ABATACEPT
     Route: 042

REACTIONS (8)
  - Joint swelling [Unknown]
  - Osteoarthritis [Unknown]
  - Urinary tract infection [Unknown]
  - Product use issue [Unknown]
  - Neutropenia [Unknown]
  - Therapy partial responder [Unknown]
  - Off label use [Unknown]
  - Red blood cell sedimentation rate increased [Unknown]
